FAERS Safety Report 14373382 (Version 1)
Quarter: 2018Q1

REPORT INFORMATION
  Report Type: Spontaneous
  Country: US (occurrence: US)
  Receive Date: 20180110
  Receipt Date: 20180110
  Transmission Date: 20180509
  Serious: Yes (Other)
  Sender: FDA-Public Use
  Company Number: US-MYLANLABS-2018M1000325

PATIENT
  Age: 28 Year
  Sex: Male

DRUGS (15)
  1. DEXAMETHASONE. [Suspect]
     Active Substance: DEXAMETHASONE
     Dosage: 1 MG DAILY
     Route: 048
  2. BEDAQUILINE [Concomitant]
     Active Substance: BEDAQUILINE
     Indication: TUBERCULOMA OF CENTRAL NERVOUS SYSTEM
     Dosage: LOADING DOSE 400 MG DAILY FOR 14 DAYS, THEN 200 MG ORALLY THREE TIMES PER WEEK
     Route: 048
  3. AMOXICILLIN AND CLAVULANATE POTASSIUM [Concomitant]
     Active Substance: AMOXICILLIN\CLAVULANATE POTASSIUM
     Indication: TUBERCULOMA OF CENTRAL NERVOUS SYSTEM
     Dosage: 500 MG/125 MG EVERY EIGHT HOURS
     Route: 048
  4. CAPREOMYCIN [Concomitant]
     Active Substance: CAPREOMYCIN
     Indication: TUBERCULOMA OF CENTRAL NERVOUS SYSTEM
     Dosage: 1000 MG DAILY
     Route: 042
  5. MEROPENEM. [Concomitant]
     Active Substance: MEROPENEM
     Indication: TUBERCULOSIS
  6. LINEZOLID. [Suspect]
     Active Substance: LINEZOLID
     Indication: TUBERCULOSIS
  7. DEXAMETHASONE. [Suspect]
     Active Substance: DEXAMETHASONE
     Indication: TUBERCULOMA OF CENTRAL NERVOUS SYSTEM
     Dosage: 2 MG, Q6H
     Route: 048
  8. MOXIFLOXACIN. [Concomitant]
     Active Substance: MOXIFLOXACIN
     Indication: TUBERCULOSIS
  9. LINEZOLID. [Suspect]
     Active Substance: LINEZOLID
     Indication: TUBERCULOMA OF CENTRAL NERVOUS SYSTEM
     Dosage: 600 MG DAILY
     Route: 048
  10. DEXAMETHASONE. [Suspect]
     Active Substance: DEXAMETHASONE
     Indication: TUBERCULOSIS
     Dosage: 1 MG EVERY OTHER DAY
     Route: 048
  11. MOXIFLOXACIN. [Concomitant]
     Active Substance: MOXIFLOXACIN
     Indication: TUBERCULOMA OF CENTRAL NERVOUS SYSTEM
     Dosage: 400 MG DAILY
     Route: 048
  12. BEDAQUILINE [Concomitant]
     Active Substance: BEDAQUILINE
     Indication: TUBERCULOSIS
  13. CAPREOMYCIN [Concomitant]
     Active Substance: CAPREOMYCIN
     Indication: TUBERCULOSIS
  14. MEROPENEM. [Concomitant]
     Active Substance: MEROPENEM
     Indication: TUBERCULOMA OF CENTRAL NERVOUS SYSTEM
     Dosage: 2G, EVERY 8 HOURS
     Route: 042
  15. AMOXICILLIN AND CLAVULANATE POTASSIUM [Concomitant]
     Active Substance: AMOXICILLIN\CLAVULANATE POTASSIUM
     Indication: TUBERCULOSIS

REACTIONS (5)
  - Asthenia [Unknown]
  - Neuropathy peripheral [Unknown]
  - Weight increased [Unknown]
  - Osteonecrosis [Unknown]
  - Fatigue [Unknown]
